FAERS Safety Report 7204674-1 (Version None)
Quarter: 2010Q4

REPORT INFORMATION
  Report Type: 
  Country: None (occurrence: None)
  Receive Date: 20101230
  Receipt Date: 20101220
  Transmission Date: 20110411
  Serious: No
  Sender: FDA-Public Use
  Company Number: US-PFIZER INC-2010152438

PATIENT
  Age: 62 Year
  Sex: Female
  Weight: 55.329 kg

DRUGS (2)
  1. ADVIL PM [Suspect]
  2. MULTI-VITAMINS [Concomitant]

REACTIONS (1)
  - DRUG EFFECT DECREASED [None]
